FAERS Safety Report 9196749 (Version 2)
Quarter: 2013Q4

REPORT INFORMATION
  Report Type: Spontaneous
  Country: US (occurrence: US)
  Receive Date: 20130328
  Receipt Date: 20131126
  Transmission Date: 20140711
  Serious: Yes (Other)
  Sender: FDA-Public Use
  Company Number: US-BAYER-2013-038308

PATIENT
  Age: 25 Year
  Sex: Female

DRUGS (8)
  1. YAZ [Suspect]
  2. YASMIN [Suspect]
  3. OCELLA [Suspect]
  4. MOTRIN [Concomitant]
     Dosage: 800 MG, UNK
     Route: 048
     Dates: start: 20070731
  5. PERCOCET [Concomitant]
     Dosage: UNK
     Route: 048
     Dates: start: 20070731
  6. IBUPROFEN [Concomitant]
     Indication: PAIN
  7. CIPRO [Concomitant]
     Indication: URINARY TRACT INFECTION
  8. DARVOCET-N [Concomitant]

REACTIONS (6)
  - Gallbladder injury [None]
  - Biliary dyskinesia [None]
  - Cholecystitis chronic [None]
  - Pain [None]
  - Injury [None]
  - Pain [None]
